FAERS Safety Report 4408027-0 (Version None)
Quarter: 2004Q3

REPORT INFORMATION
  Report Type: 
  Country: None (occurrence: None)
  Receive Date: 20040726
  Receipt Date: 20040716
  Transmission Date: 20050211
  Serious: Yes (Disabling)
  Sender: FDA-Public Use
  Company Number: JP-MERCK-0407USA01764

PATIENT
  Age: 66 Year
  Sex: Female

DRUGS (3)
  1. [THERAPY UNSPECIFIED] [Suspect]
     Indication: CERVICOBRACHIAL SYNDROME
     Route: 048
     Dates: start: 20040708, end: 20040712
  2. CHONDROITIN SULFATE SODIUM [Suspect]
     Indication: CERVICOBRACHIAL SYNDROME
     Route: 042
     Dates: start: 20040708, end: 20040712
  3. CLINORIL [Suspect]
     Indication: CERVICOBRACHIAL SYNDROME
     Route: 048
     Dates: start: 20040708, end: 20040712

REACTIONS (1)
  - GENERALISED ERYTHEMA [None]
